FAERS Safety Report 5642784-0 (Version None)
Quarter: 2008Q1

REPORT INFORMATION
  Report Type: 
  Country: None (occurrence: None)
  Receive Date: 20080228
  Receipt Date: 20080218
  Transmission Date: 20080703
  Serious: Yes (Other)
  Sender: FDA-Public Use
  Company Number: GB-AMGEN-US266382

PATIENT
  Age: 67 Year
  Sex: Female
  Weight: 66.6 kg

DRUGS (4)
  1. ENBREL [Suspect]
     Indication: DRUG USE FOR UNKNOWN INDICATION
     Route: 065
     Dates: start: 20060110, end: 20080128
  2. METHOTREXATE [Concomitant]
     Dosage: 20MG, FREQUENCY UNKNOWN
     Route: 065
     Dates: start: 20020701
  3. SULFASALAZINE [Concomitant]
     Route: 065
     Dates: start: 20040201
  4. FOLIC ACID [Concomitant]
     Dosage: 5MG, FREQUENCY UNKNOWN
     Route: 065
     Dates: start: 20070701

REACTIONS (1)
  - RHEUMATOID NODULE [None]
